FAERS Safety Report 18586133 (Version 1)
Quarter: 2020Q4

REPORT INFORMATION
  Report Type: Spontaneous
  Country: DE (occurrence: DE)
  Receive Date: 20201207
  Receipt Date: 20201207
  Transmission Date: 20210114
  Serious: Yes (Life-Threatening, Hospitalization)
  Sender: FDA-Public Use
  Company Number: DE-PFIZER INC-2020478493

PATIENT
  Age: 14 Year
  Sex: Female
  Weight: 54 kg

DRUGS (3)
  1. LEVOCETIRIZIN TAD [Suspect]
     Active Substance: LEVOCETIRIZINE DIHYDROCHLORIDE
     Indication: SUICIDE ATTEMPT
     Dosage: 20 MG, SINGLE
     Route: 048
     Dates: start: 20201114, end: 20201114
  2. SCHUESSLER SALT NO 5 (POTASSIUM PHOSPHATE, DIBASIC\POTASSIUM PHOSPHATE, MONOBASIC) [Suspect]
     Active Substance: POTASSIUM PHOSPHATE, DIBASIC\POTASSIUM PHOSPHATE, MONOBASIC
     Indication: SUICIDE ATTEMPT
     Dosage: 50 DF
  3. IBUPROFEN. [Suspect]
     Active Substance: IBUPROFEN
     Indication: SUICIDE ATTEMPT
     Dosage: 1.2 G, SINGLE
     Route: 048
     Dates: start: 20201114, end: 20201114

REACTIONS (5)
  - Vertigo [Recovered/Resolved]
  - Paraesthesia [Recovered/Resolved]
  - Suicide attempt [Recovered/Resolved]
  - Hyperventilation [Recovered/Resolved]
  - Overdose [Unknown]

NARRATIVE: CASE EVENT DATE: 20201114
